FAERS Safety Report 16850969 (Version 2)
Quarter: 2019Q4

REPORT INFORMATION
  Report Type: Spontaneous
  Country: US (occurrence: US)
  Receive Date: 20190925
  Receipt Date: 20191220
  Transmission Date: 20200122
  Serious: No
  Sender: FDA-Public Use
  Company Number: US-THERAPEUTICSMD-2019TMD02138

PATIENT
  Age: 53 Year
  Sex: Female
  Weight: 85.26 kg

DRUGS (6)
  1. IMVEXXY [Suspect]
     Active Substance: ESTRADIOL
     Dosage: 10 ?G, 2X/WEEK AT BEDTIME
     Route: 067
     Dates: start: 201905, end: 20190616
  2. MULTIVITAMIN [Concomitant]
     Active Substance: VITAMINS
  3. PROGESTERONE. [Suspect]
     Active Substance: PROGESTERONE
     Dosage: 1 ^PILL^, 1X/DAY AT NIGHT
     Dates: start: 20190421, end: 201907
  4. IMVEXXY [Suspect]
     Active Substance: ESTRADIOL
     Dosage: 10 ?G, 1X/DAY AT BEDTIME
     Route: 067
     Dates: start: 20190421, end: 201905
  5. SPIRULINA [Concomitant]
     Active Substance: SPIRULINA
  6. ESTRADIOL TRANSDERMAL SYSTEM [Suspect]
     Active Substance: ESTRADIOL
     Dosage: 1 PATCH, 2X/WEEK; KEPT PATCH ON AT ALL TIMES
     Dates: start: 20190421, end: 201907

REACTIONS (7)
  - White matter lesion [Not Recovered/Not Resolved]
  - Hypoaesthesia oral [Recovering/Resolving]
  - Muscular weakness [Recovering/Resolving]
  - Off label use [Recovered/Resolved]
  - Feeling hot [Recovering/Resolving]
  - Swollen tongue [Recovered/Resolved]
  - Hypoaesthesia [Recovering/Resolving]

NARRATIVE: CASE EVENT DATE: 20190421
